FAERS Safety Report 6377491-2 (Version None)
Quarter: 2009Q3

REPORT INFORMATION
  Report Type: 
  Country: None (occurrence: None)
  Receive Date: 20090923
  Receipt Date: 20090923
  Transmission Date: 20100115
  Serious: Yes (Life-Threatening, Hospitalization)
  Sender: FDA-Public Use
  Company Number: None

PATIENT
  Age: 30 Year
  Sex: Male
  Weight: 75.1 kg

DRUGS (3)
  1. PHENOBARBITAL 97.2MG [Suspect]
     Indication: SUICIDE ATTEMPT
     Dosage: 97.2MG PO
     Route: 048
     Dates: start: 20090808
  2. CITALOPRAM HYDROBROMIDE [Concomitant]
  3. APRIPRAZOLE [Concomitant]

REACTIONS (7)
  - HEPATITIS [None]
  - HYPOTENSION [None]
  - LETHARGY [None]
  - LIVER FUNCTION TEST ABNORMAL [None]
  - MENTAL STATUS CHANGES [None]
  - OVERDOSE [None]
  - SOMNOLENCE [None]
